FAERS Safety Report 7121252-3 (Version None)
Quarter: 2010Q4

REPORT INFORMATION
  Report Type: 
  Country: None (occurrence: None)
  Receive Date: 20101124
  Receipt Date: 20101118
  Transmission Date: 20110411
  Serious: Yes (Other)
  Sender: FDA-Public Use
  Company Number: US-PURDUE-USA-2010-0049059

PATIENT
  Age: 41 Year
  Sex: Female
  Weight: 145.13 kg

DRUGS (8)
  1. OXYCONTIN [Suspect]
     Indication: PAIN
  2. OXYCODONE HCL [Concomitant]
     Indication: BREAKTHROUGH PAIN
     Dosage: 15 MG, UNK
  3. FOSINOPRIL SODIUM [Concomitant]
     Indication: BLOOD PRESSURE
  4. FLEXERIL [Concomitant]
     Indication: MUSCLE RELAXANT THERAPY
  5. CYMBALTA [Concomitant]
     Indication: DEPRESSION
  6. LORAZEPAM [Concomitant]
     Indication: ANXIETY
  7. MIRALAX [Concomitant]
  8. MULTI-VITAMINS [Concomitant]

REACTIONS (7)
  - DIARRHOEA [None]
  - DRUG EFFECT DECREASED [None]
  - DYSPEPSIA [None]
  - GASTRIC BYPASS [None]
  - INADEQUATE ANALGESIA [None]
  - MEDICATION RESIDUE [None]
  - THERAPEUTIC RESPONSE INCREASED [None]
